FAERS Safety Report 7071722-1 (Version None)
Quarter: 2010Q4

REPORT INFORMATION
  Report Type: 
  Country: None (occurrence: None)
  Receive Date: 20101029
  Receipt Date: 20100318
  Transmission Date: 20110411
  Serious: No
  Sender: FDA-Public Use
  Company Number: A0811590A

PATIENT
  Age: 70 Year
  Sex: Female

DRUGS (4)
  1. ADVAIR DISKUS 100/50 [Suspect]
     Indication: ASTHMA
     Dosage: 1PUFF TWICE PER DAY
     Route: 055
     Dates: start: 20090701, end: 20091010
  2. SINGULAIR [Concomitant]
  3. LEVOXYL [Concomitant]
  4. AVAPRO [Concomitant]

REACTIONS (8)
  - ABDOMINAL PAIN UPPER [None]
  - CANDIDIASIS [None]
  - COUGH [None]
  - DISCOMFORT [None]
  - DISORIENTATION [None]
  - DYSPHONIA [None]
  - DYSPNOEA [None]
  - MYALGIA [None]
